FAERS Safety Report 11559019 (Version 1)
Quarter: 2015Q3

REPORT INFORMATION
  Report Type: Spontaneous
  Country: US (occurrence: US)
  Receive Date: 20150916
  Receipt Date: 20150916
  Transmission Date: 20151125
  Serious: No
  Sender: FDA-Public Use
  Company Number: US-ELI_LILLY_AND_COMPANY-US200807006040

PATIENT
  Age: 65 Year
  Sex: Female

DRUGS (6)
  1. ZOCOR [Concomitant]
     Active Substance: SIMVASTATIN
  2. VASOTEC [Concomitant]
     Active Substance: ENALAPRIL MALEATE
  3. CALCIUM CITRATE [Concomitant]
     Active Substance: CALCIUM CITRATE
  4. CELEXA [Concomitant]
     Active Substance: CITALOPRAM HYDROBROMIDE
  5. FORTEO [Suspect]
     Active Substance: TERIPARATIDE
     Indication: OSTEOPOROSIS
     Dosage: UNK, UNK
     Dates: start: 200801
  6. VITAMIN D [Concomitant]
     Active Substance: CHOLECALCIFEROL

REACTIONS (3)
  - Fall [Recovered/Resolved]
  - Humerus fracture [Not Recovered/Not Resolved]
  - Dyspnoea [Recovered/Resolved]

NARRATIVE: CASE EVENT DATE: 20080726
